FAERS Safety Report 6950120-2 (Version None)
Quarter: 2010Q3

REPORT INFORMATION
  Report Type: 
  Country: None (occurrence: None)
  Receive Date: 20100828
  Receipt Date: 20100218
  Transmission Date: 20110219
  Serious: No
  Sender: FDA-Public Use
  Company Number: US-ABBOTT-10P-163-0620805-00

PATIENT
  Age: 67 Year
  Sex: Male

DRUGS (6)
  1. NIASPAN [Suspect]
     Indication: LOW DENSITY LIPOPROTEIN INCREASED
     Dates: start: 20100113
  2. VITAMINS [Concomitant]
     Indication: VITAMIN SUPPLEMENTATION
  3. ASPIRIN [Concomitant]
     Indication: PREMEDICATION
     Dates: start: 20100113
  4. ALLEGRA [Concomitant]
     Indication: ADVERSE DRUG REACTION
  5. ALLEGRA [Concomitant]
     Indication: RASH MACULAR
  6. ALLEGRA [Concomitant]
     Indication: PRURITUS

REACTIONS (3)
  - FLUSHING [None]
  - INITIAL INSOMNIA [None]
  - PRURITUS [None]
